FAERS Safety Report 6484670-2 (Version None)
Quarter: 2009Q4

REPORT INFORMATION
  Report Type: 
  Country: None (occurrence: None)
  Receive Date: 20091209
  Receipt Date: 20091127
  Transmission Date: 20100525
  Serious: Yes (Other)
  Sender: FDA-Public Use
  Company Number: GB-PFIZER INC-2009303570

PATIENT
  Age: 9 Day
  Sex: Female

DRUGS (2)
  1. PHENYTOIN SODIUM CAP [Suspect]
     Indication: CONVULSION
     Dosage: 20 MG/KG, UNK
     Route: 042
  2. PHENYTOIN SODIUM CAP [Suspect]
     Dosage: 2.5 MG/KG, 2X/DAY
     Route: 042

REACTIONS (1)
  - POOR VENOUS ACCESS [None]
